FAERS Safety Report 10034770 (Version 1)
Quarter: 2014Q1

REPORT INFORMATION
  Report Type: Spontaneous
  Country: US (occurrence: None)
  Receive Date: 20140306
  Receipt Date: 20140306
  Transmission Date: 20141002
  Serious: Yes (Disabling, Other)
  Sender: FDA-Public Use
  Company Number: 163-21880-13074016

PATIENT
  Age: 54 Year
  Sex: Female

DRUGS (6)
  1. REVLIMID (LENALIDOMIDE) (25 MILLIGRAM, CAPSULES) [Suspect]
     Indication: PLASMA CELL MYELOMA
     Dosage: 14 IN 14 D
     Route: 048
     Dates: start: 20130305, end: 20130621
  2. MELOXICAM [Concomitant]
  3. DEXAMETHASONE [Concomitant]
  4. VALACYCLOVIR (VALACICLOVIR HYDROCHLORIDE) (UNKNOWN) [Concomitant]
  5. GABAPENTIN [Concomitant]
  6. BACLOFEN [Concomitant]

REACTIONS (1)
  - Pain in extremity [None]
